FAERS Safety Report 9696370 (Version 1)
Quarter: 2013Q4

REPORT INFORMATION
  Report Type: Report from Study
  Country: CA (occurrence: CA)
  Receive Date: 20131119
  Receipt Date: 20131119
  Transmission Date: 20140711
  Serious: Yes (Hospitalization)
  Sender: FDA-Public Use
  Company Number: CA-ROCHE-1301137

PATIENT
  Age: 56 Year
  Sex: Female

DRUGS (11)
  1. CAPECITABINE [Suspect]
     Indication: PRODUCT USED FOR UNKNOWN INDICATION
     Dosage: THEAPY DURATION:  8.0 DAYS
     Route: 048
  2. CAPECITABINE [Suspect]
     Route: 048
  3. CAPECITABINE [Suspect]
     Route: 048
  4. OXALIPLATIN [Suspect]
     Indication: PRODUCT USED FOR UNKNOWN INDICATION
     Route: 042
  5. IRINOTECAN HYDROCHLORIDE [Suspect]
     Indication: PRODUCT USED FOR UNKNOWN INDICATION
     Route: 042
  6. LOPERAMIDE [Concomitant]
     Route: 065
  7. OXYCONTIN [Concomitant]
     Dosage: TABLET (EXTENDED-RELEASE)
     Route: 065
  8. PROCHLORPERAZINE [Concomitant]
     Route: 065
  9. SUCRALFATE [Concomitant]
     Route: 065
  10. DEXAMETHASONE [Concomitant]
  11. METOCLOPRAMIDE [Concomitant]

REACTIONS (6)
  - Abdominal abscess [Unknown]
  - Abscess drainage [Unknown]
  - Cholecystitis [Unknown]
  - Diarrhoea [Unknown]
  - Nausea [Unknown]
  - Vomiting [Unknown]
